FAERS Safety Report 18429031 (Version 1)
Quarter: 2020Q4

REPORT INFORMATION
  Report Type: Spontaneous
  Country: FR (occurrence: FR)
  Receive Date: 20201026
  Receipt Date: 20201026
  Transmission Date: 20210114
  Serious: Yes (Other)
  Sender: FDA-Public Use
  Company Number: FR-MYLANLABS-2020M1089685

PATIENT
  Age: 44 Year
  Sex: Male

DRUGS (2)
  1. GEMCITABINE. [Suspect]
     Active Substance: GEMCITABINE
     Indication: GALLBLADDER CANCER
     Dosage: 1620 MILLIGRAM, QD
     Route: 042
     Dates: start: 20200424, end: 20200424
  2. OXALIPLATIN. [Suspect]
     Active Substance: OXALIPLATIN
     Indication: GALLBLADDER CANCER
     Dosage: 162 MILLIGRAM, QD
     Route: 042
     Dates: start: 20200424, end: 20200424

REACTIONS (2)
  - Hepatocellular injury [Recovering/Resolving]
  - Cholestasis [Recovering/Resolving]

NARRATIVE: CASE EVENT DATE: 20200508
